FAERS Safety Report 23774687 (Version 1)
Quarter: 2024Q2

REPORT INFORMATION
  Report Type: Spontaneous
  Country: GB (occurrence: GB)
  Receive Date: 20240423
  Receipt Date: 20240423
  Transmission Date: 20240716
  Serious: Yes (Other)
  Sender: FDA-Public Use
  Company Number: GB-SUN PHARMACEUTICAL INDUSTRIES LTD-2024RR-436581

PATIENT

DRUGS (1)
  1. ROSUVASTATIN [Suspect]
     Active Substance: ROSUVASTATIN
     Indication: Product used for unknown indication
     Dosage: DUE TO INCREASE THIS MEDICATION TO 1 A DAY AFTER ANOTHER 3 DOSES
     Route: 065

REACTIONS (4)
  - Constipation [Unknown]
  - Abdominal pain [Unknown]
  - Myalgia [Unknown]
  - Musculoskeletal stiffness [Unknown]
